FAERS Safety Report 4939200-0 (Version None)
Quarter: 2006Q1

REPORT INFORMATION
  Report Type: 
  Country: None (occurrence: None)
  Receive Date: 20060306
  Receipt Date: 20060220
  Transmission Date: 20060701
  Serious: Yes (Hospitalization)
  Sender: FDA-Public Use
  Company Number: CIP06000302

PATIENT
  Age: 81 Year
  Sex: Female

DRUGS (9)
  1. FURADANTIN [Suspect]
     Indication: CYSTITIS
     Dosage: SEE IMAGE
     Route: 048
     Dates: start: 20051212, end: 20051219
  2. FURADANTIN [Suspect]
     Indication: CYSTITIS
     Dosage: SEE IMAGE
     Route: 048
     Dates: start: 20051225, end: 20051229
  3. TENORMIN [Suspect]
     Dosage: 50 MG DAILY
     Dates: end: 20051229
  4. ACETAMINOPHEN [Suspect]
     Dosage: 3 G DAILY, ORAL
     Route: 048
     Dates: end: 20051229
  5. ASPIRIN [Concomitant]
  6. SERMION (NICERGOLINE) [Concomitant]
  7. GAVISCON [Concomitant]
  8. LORAZEPAM [Concomitant]
  9. ADANCOR (NICORANDIL) [Concomitant]

REACTIONS (3)
  - HEPATITIS ACUTE [None]
  - HYPOCHROMIC ANAEMIA [None]
  - TREMOR [None]
